FAERS Safety Report 9229584 (Version 1)
Quarter: 2013Q2

REPORT INFORMATION
  Report Type: Spontaneous
  Country: IE (occurrence: IE)
  Receive Date: 20130414
  Receipt Date: 20130414
  Transmission Date: 20140414
  Serious: Yes (Hospitalization)
  Sender: FDA-Public Use
  Company Number: IE-B.I. PHARMACEUTICALS,INC./RIDGEFIELD-2013-UK-00861UK

PATIENT
  Age: 81 Year
  Sex: Male

DRUGS (17)
  1. PRADAXA [Suspect]
     Indication: ATRIAL FIBRILLATION
     Dosage: 220 MG
     Route: 048
     Dates: start: 20130109, end: 20130212
  2. DICLOFENAC [Suspect]
     Indication: BACK PAIN
     Dosage: 150 MG
     Route: 048
     Dates: start: 20130128, end: 20130204
  3. DICLOFENAC [Suspect]
     Indication: OSTEOPOROTIC FRACTURE
  4. ASPIRIN [Suspect]
     Dosage: 75 MG
     Route: 048
     Dates: end: 20130212
  5. BISOPROLOL [Concomitant]
     Indication: HYPERTENSION
     Dosage: 5 MG
     Route: 048
  6. FOLIC ACID [Concomitant]
     Indication: FOLATE DEFICIENCY
     Dosage: 5 MG
     Route: 048
  7. OLMESARTAN [Concomitant]
     Indication: HYPERTENSION
     Dosage: 20 MG
     Route: 048
  8. ATORVASTATIN [Concomitant]
     Indication: HYPERCHOLESTEROLAEMIA
     Dosage: 20 MG
     Route: 048
  9. BURINEX [Concomitant]
     Dosage: 1 MG
     Route: 048
  10. GLUCOSAMINE [Concomitant]
     Indication: OSTEOARTHRITIS
     Dosage: 1250 MG
     Route: 048
  11. OSTEOFOS D3 [Concomitant]
     Indication: OSTEOPOROSIS
     Route: 048
  12. BONVIVA [Concomitant]
     Indication: OSTEOPOROSIS
     Dosage: 5 MG
     Route: 048
  13. LYRICA [Concomitant]
     Indication: BACK PAIN
     Dosage: 100 MG
     Route: 048
  14. PANTOPRAZOLE [Concomitant]
     Dosage: 40 MG
     Dates: start: 20130128
  15. GABAPENTIN [Concomitant]
     Indication: BACK PAIN
     Dosage: 50 MG
     Dates: start: 20130128
  16. GABAPENTIN [Concomitant]
     Indication: OSTEOPOROTIC FRACTURE
     Dosage: 100 MG
  17. GABAPENTIN [Concomitant]
     Indication: HEADACHE
     Dosage: 150 MG
     Route: 048

REACTIONS (4)
  - Gastrointestinal haemorrhage [Recovered/Resolved]
  - Gastrointestinal erosion [Recovered/Resolved]
  - Gastritis [Recovered/Resolved]
  - Confusional state [Recovered/Resolved]
